FAERS Safety Report 9536124 (Version 1)
Quarter: 2013Q2

REPORT INFORMATION
  Report Type: Spontaneous
  Country: US (occurrence: None)
  Receive Date: 20130507
  Receipt Date: 20130507
  Transmission Date: 20140414
  Serious: No
  Sender: FDA-Public Use
  Company Number: PHEH2013US001018

PATIENT
  Age: 61 Year
  Sex: Female
  Weight: 89.3 kg

DRUGS (6)
  1. AFINITOR (RAD) UNKNOWN [Suspect]
     Indication: BREAST CANCER
     Route: 048
     Dates: start: 20121001, end: 20121218
  2. OMEGA 3 (FISH OIL) [Concomitant]
  3. VITAMIN B COMPLEX (VITAMIN B COMPLEX) [Concomitant]
  4. VITAMIN C [Concomitant]
  5. MTV (VITAMINS NOS) [Concomitant]
  6. MINERALS NOS (MINERALS NOS) [Concomitant]

REACTIONS (3)
  - Dysphonia [None]
  - Oropharyngeal pain [None]
  - Cough [None]
